FAERS Safety Report 22745138 (Version 2)
Quarter: 2024Q2

REPORT INFORMATION
  Report Type: Spontaneous
  Country: US (occurrence: US)
  Receive Date: 20230725
  Receipt Date: 20240615
  Transmission Date: 20240716
  Serious: No
  Sender: FDA-Public Use
  Company Number: US-ABBVIE-5338845

PATIENT
  Sex: Female
  Weight: 58.966 kg

DRUGS (9)
  1. BOTOX COSMETIC [Suspect]
     Active Substance: ONABOTULINUMTOXINA
     Indication: Skin wrinkling
     Dosage: TIME INTERVAL: AS NECESSARY: 46 UNIT
     Route: 065
     Dates: start: 20231028, end: 20231028
  2. BOTOX COSMETIC [Suspect]
     Active Substance: ONABOTULINUMTOXINA
     Indication: Skin wrinkling
     Dosage: TIME INTERVAL: AS NECESSARY: ON THE SIDES AND THE PROCERUS MUSCLE DEEP LINE IN BETWEEN ELEVENS
     Route: 065
  3. BOTOX COSMETIC [Suspect]
     Active Substance: ONABOTULINUMTOXINA
     Indication: Skin wrinkling
     Dosage: TIME INTERVAL: AS NECESSARY: 20 UNITS
     Route: 065
     Dates: start: 20231110, end: 20231110
  4. BOTOX COSMETIC [Suspect]
     Active Substance: ONABOTULINUMTOXINA
     Indication: Skin wrinkling
     Dosage: TIME INTERVAL: AS NECESSARY: ON THE SIDES AND THE PROCERUS MUSCLE DEEP LINE IN BETWEEN ELEVENS
     Route: 065
  5. BOTOX COSMETIC [Suspect]
     Active Substance: ONABOTULINUMTOXINA
     Indication: Skin wrinkling
     Dosage: TIME INTERVAL: AS NECESSARY: 72 UNIT  X 3 AREAS
     Route: 065
     Dates: start: 20240102, end: 20240102
  6. BOTOX COSMETIC [Suspect]
     Active Substance: ONABOTULINUMTOXINA
     Indication: Skin wrinkling
     Dosage: TIME INTERVAL: AS NECESSARY: PROCERUS MUSCLE DEEP LINE IN BETWEEN ELEVENS 4 UNITS IN THE MIDDLE A...
  7. BOTOX COSMETIC [Suspect]
     Active Substance: ONABOTULINUMTOXINA
     Indication: Skin wrinkling
     Dosage: TIME INTERVAL: AS NECESSARY: 46 UNIT
     Route: 065
     Dates: start: 20231028, end: 20231028
  8. BOTOX COSMETIC [Suspect]
     Active Substance: ONABOTULINUMTOXINA
     Indication: Skin wrinkling
     Dosage: TIME INTERVAL: AS NECESSARY: 72 UNIT  X 3 AREAS
     Route: 065
     Dates: start: 20240102, end: 20240102
  9. BOTOX COSMETIC [Suspect]
     Active Substance: ONABOTULINUMTOXINA
     Indication: Skin wrinkling
     Dosage: TIME INTERVAL: AS NECESSARY: 72 UNIT  X 3 AREAS
     Route: 065
     Dates: start: 20240102, end: 20240102

REACTIONS (1)
  - Drug ineffective [Not Recovered/Not Resolved]
